FAERS Safety Report 17669830 (Version 1)
Quarter: 2020Q2

REPORT INFORMATION
  Report Type: Spontaneous
  Country: US (occurrence: US)
  Receive Date: 20200415
  Receipt Date: 20200415
  Transmission Date: 20200713
  Serious: No
  Sender: FDA-Public Use
  Company Number: US-GLENMARK PHARMACEUTICALS-2019GMK044292

PATIENT

DRUGS (2)
  1. PREDNISONE. [Concomitant]
     Active Substance: PREDNISONE
     Indication: DERMATITIS CONTACT
     Dosage: UNK
     Route: 048
  2. CALCIPOTRIENE CREAM 0.005% [Suspect]
     Active Substance: CALCIPOTRIENE
     Indication: DERMATITIS CONTACT
     Dosage: UNK
     Route: 061
     Dates: start: 201910, end: 201910

REACTIONS (5)
  - Product administered at inappropriate site [Unknown]
  - Dermatitis contact [Not Recovered/Not Resolved]
  - Product use in unapproved indication [Unknown]
  - Allergic reaction to excipient [Not Recovered/Not Resolved]
  - Condition aggravated [Not Recovered/Not Resolved]

NARRATIVE: CASE EVENT DATE: 201910
